FAERS Safety Report 5677509-6 (Version None)
Quarter: 2008Q1

REPORT INFORMATION
  Report Type: 
  Country: None (occurrence: None)
  Receive Date: 20080324
  Receipt Date: 20080312
  Transmission Date: 20080703
  Serious: Yes (Other)
  Sender: FDA-Public Use
  Company Number: NL-PFIZER INC-2008024170

PATIENT
  Sex: Male
  Weight: 75 kg

DRUGS (1)
  1. LYRICA [Suspect]
     Indication: NEURALGIA
     Route: 048

REACTIONS (4)
  - ANAPHYLACTIC SHOCK [None]
  - DISTURBANCE IN ATTENTION [None]
  - DYSLEXIA [None]
  - NERVOUS SYSTEM DISORDER [None]
